FAERS Safety Report 17480558 (Version 1)
Quarter: 2020Q1

REPORT INFORMATION
  Report Type: Report from Study
  Country: EG (occurrence: EG)
  Receive Date: 20200301
  Receipt Date: 20200301
  Transmission Date: 20200409
  Serious: Yes (Other)
  Sender: FDA-Public Use
  Company Number: NVSC2020EG051505

PATIENT
  Age: 57 Year
  Sex: Female

DRUGS (3)
  1. CLAUDINE [Concomitant]
     Indication: HEPATITIS B
     Dosage: 0.5 MG, QD
     Route: 065
  2. GLIVEC [Suspect]
     Active Substance: IMATINIB MESYLATE
     Indication: CHRONIC MYELOID LEUKAEMIA
     Dosage: 400 MG, QD (STARTED ONE YEAR AND 2 MONTHS AGO)
     Route: 048
  3. GLIMET [Concomitant]
     Indication: PRODUCT USED FOR UNKNOWN INDICATION
     Dosage: 1 DF, QD (3 YEARS AGO)
     Route: 065

REACTIONS (7)
  - Hypoglycaemia [Recovered/Resolved]
  - Angina pectoris [Recovering/Resolving]
  - Fluid retention [Not Recovered/Not Resolved]
  - Oedema peripheral [Not Recovered/Not Resolved]
  - Periorbital swelling [Not Recovered/Not Resolved]
  - Tachycardia [Recovered/Resolved]
  - Product dose omission [Recovered/Resolved]

NARRATIVE: CASE EVENT DATE: 2019
